FAERS Safety Report 7524491-2 (Version None)
Quarter: 2011Q2

REPORT INFORMATION
  Report Type: 
  Country: None (occurrence: None)
  Receive Date: 20110525
  Receipt Date: 20110510
  Transmission Date: 20111010
  Serious: Yes (Hospitalization)
  Sender: FDA-Public Use
  Company Number: 2011MA005761

PATIENT
  Age: 42 Year
  Sex: Male

DRUGS (3)
  1. MITOXANTRONE [Concomitant]
  2. FLUDARABINE PHOSPHATE [Suspect]
     Indication: ACUTE LYMPHOCYTIC LEUKAEMIA
  3. CYTARABINE [Concomitant]

REACTIONS (5)
  - BRAIN ABSCESS [None]
  - CONFUSIONAL STATE [None]
  - CEREBRAL FUNGAL INFECTION [None]
  - HEMIPARESIS [None]
  - STAPHYLOCOCCAL ABSCESS [None]
